FAERS Safety Report 5125735-7 (Version None)
Quarter: 2006Q4

REPORT INFORMATION
  Report Type: 
  Country: None (occurrence: None)
  Receive Date: 20061012
  Receipt Date: 20060929
  Transmission Date: 20070319
  Serious: Yes (Hospitalization)
  Sender: FDA-Public Use
  Company Number: BEWYE079729SEP06

PATIENT
  Age: 73 Year
  Sex: Female

DRUGS (6)
  1. ENBREL [Suspect]
     Indication: RHEUMATOID ARTHRITIS
     Route: 058
     Dates: start: 20060118
  2. METHOTREXATE [Concomitant]
     Dates: start: 19980101
  3. PROGLUMETACIN [Concomitant]
     Dates: start: 20060620
  4. AMLODIPINE BESYLATE [Concomitant]
  5. TRIAMTERENE AND HYDROCHLOROTHIAZIDE [Concomitant]
  6. LORAZEPAM [Concomitant]

REACTIONS (1)
  - CYSTITIS NONINFECTIVE [None]
